FAERS Safety Report 9012733 (Version 1)
Quarter: 2013Q1

REPORT INFORMATION
  Report Type: Spontaneous
  Country: US (occurrence: US)
  Receive Date: 20130114
  Receipt Date: 20130114
  Transmission Date: 20140127
  Serious: Yes (Other)
  Sender: FDA-Public Use
  Company Number: US-PFIZER INC-2013013211

PATIENT
  Age: 44 Year
  Sex: Female
  Weight: 56.69 kg

DRUGS (2)
  1. EFFEXOR XR [Suspect]
     Indication: DEPRESSION
     Dosage: 37.5 MG, 1X/DAY
     Route: 048
     Dates: start: 201207, end: 20130106
  2. AMBIEN [Concomitant]
     Dosage: UNK

REACTIONS (1)
  - Withdrawal syndrome [Not Recovered/Not Resolved]
